FAERS Safety Report 21179122 (Version 2)
Quarter: 2022Q3

REPORT INFORMATION
  Report Type: Spontaneous
  Country: DE (occurrence: DE)
  Receive Date: 20220805
  Receipt Date: 20220831
  Transmission Date: 20221027
  Serious: Yes (Hospitalization)
  Sender: FDA-Public Use
  Company Number: DE-ORGANON-O2207DEU001591

PATIENT
  Age: 66 Year
  Sex: Female
  Weight: 62 kg

DRUGS (27)
  1. CARBOPLATIN [Suspect]
     Active Substance: CARBOPLATIN
     Indication: Non-small cell lung cancer stage III
     Dosage: AREA UNDER THE CURVE (AUC) 2 MG/ML/MIN ON DAY 1, 8 AND 15 IN CYCLE 2 AND 3; CYCLICAL
     Route: 042
     Dates: start: 20220509, end: 20220614
  2. CARBOPLATIN [Suspect]
     Active Substance: CARBOPLATIN
     Dosage: AREA UNDER THE CURVE (AUC) 6 MG/ML/MIN ON DAY 1 IN CYCLE 1, ONCE
     Route: 042
     Dates: start: 20220419, end: 20220419
  3. CARBOPLATIN [Suspect]
     Active Substance: CARBOPLATIN
     Dosage: 681.24 MILLIGRAM, UNDER THE CURVE (AUC) 6 MG/ML/MIN, ONCE
     Route: 042
     Dates: start: 20220419, end: 20220614
  4. PACLITAXEL [Suspect]
     Active Substance: PACLITAXEL
     Indication: Non-small cell lung cancer stage III
     Dosage: 45 MG/M2, ON DAY 1, 8 AND 15 IN CYCLE 2 AND 3 CYCLICAL?PHARMACEUTICAL DOSE FORM TERMID: PFT-22010?PH
     Route: 042
     Dates: start: 20220509, end: 20220614
  5. PACLITAXEL [Suspect]
     Active Substance: PACLITAXEL
     Dosage: 200 MG/M2, ON DAY 1 IN CYCLE 1; (DOSE ALSO REPORTED AS 314 MG), ONCE
     Dates: start: 20220419, end: 20220419
  6. HYDROCHLOROTHIAZIDE [Suspect]
     Active Substance: HYDROCHLOROTHIAZIDE
     Indication: Condition aggravated
     Dosage: 25 MILLIGRAM, QD
     Route: 048
  7. HYDROCHLOROTHIAZIDE [Suspect]
     Active Substance: HYDROCHLOROTHIAZIDE
     Indication: Hypertension
     Dosage: 25 MILLIGRAM, QD
     Route: 048
     Dates: start: 20220311
  8. HYDROCHLOROTHIAZIDE [Suspect]
     Active Substance: HYDROCHLOROTHIAZIDE
     Dosage: 25 MILLIGRAM, QD?25 MG?PHARMACEUTICAL DOSE FORM TERMID:PDF-10219000?PHARMACEUTICAL DOSE FORM TERM ID
  9. METOPROLOL [Suspect]
     Active Substance: METOPROLOL
     Indication: Condition aggravated
     Dosage: 47.5 MILLIGRAM, QD
     Route: 048
  10. METOPROLOL [Suspect]
     Active Substance: METOPROLOL
     Indication: Hypertension
     Dosage: 47.5 MILLIGRAM, QD
     Route: 048
     Dates: start: 20220311
  11. METOPROLOL [Suspect]
     Active Substance: METOPROLOL
     Indication: Insomnia
  12. PEMBROLIZUMAB [Suspect]
     Active Substance: PEMBROLIZUMAB
     Indication: Non-small cell lung cancer stage III
     Dosage: UNK
  13. PEMBROLIZUMAB [Suspect]
     Active Substance: PEMBROLIZUMAB
     Dosage: UNK
  14. ASPIRIN [Suspect]
     Active Substance: ASPIRIN
     Indication: Condition aggravated
     Dosage: 100 MILLIGRAM, QD
     Route: 048
  15. ASPIRIN [Suspect]
     Active Substance: ASPIRIN
     Indication: Anticoagulant therapy
     Dosage: 100 MILLIGRAM, QD
     Route: 048
     Dates: start: 20220311
  16. INDACATEROL [Suspect]
     Active Substance: INDACATEROL
     Indication: Condition aggravated
     Dosage: 85 MICROGRAM, QD; FORMULATION REPORTED AS INHALANT
     Route: 055
  17. INDACATEROL [Suspect]
     Active Substance: INDACATEROL
     Dosage: 85 MICROGRAM, QD; FORMULATION REPORTED AS INHALANT?85 UG?ROUTE OF ADMINISTRATION TERMID:ROA-ROA-ROA-
  18. EZETIMIBE [Suspect]
     Active Substance: EZETIMIBE
     Indication: Hypercholesterolaemia
     Dosage: 10 MILLIGRAM, QD
     Route: 048
     Dates: start: 20220311
  19. EZETIMIBE [Suspect]
     Active Substance: EZETIMIBE
     Indication: Condition aggravated
     Dosage: 10 MILLIGRAM, QD
     Route: 048
     Dates: start: 20220704
  20. EZETIMIBE [Suspect]
     Active Substance: EZETIMIBE
     Dosage: PHARMACEUTICAL DOSE FORM TERMID: PDF-10219000?PHARMACEUTICAL DOSE FORM TERM ID VER. DATE/NUM:1?ROUTE
  21. CANDESARTAN [Suspect]
     Active Substance: CANDESARTAN
     Indication: Hypertension
     Dosage: 32 MILLIGRAM, QD
     Route: 048
     Dates: start: 20220311
  22. CANDESARTAN [Suspect]
     Active Substance: CANDESARTAN
     Indication: Condition aggravated
     Dosage: 0.16 MILLIGRAM, QD
     Route: 048
     Dates: start: 20220705
  23. CANDESARTAN [Suspect]
     Active Substance: CANDESARTAN
     Dosage: 0.16 MILLIGRAM, QD/ORAL?0.16 MG?PDF-10219000
  24. ATORVASTATIN [Suspect]
     Active Substance: ATORVASTATIN
     Indication: Hypercholesterolaemia
     Dosage: 40 MILLIGRAM, QD
     Route: 048
  25. ATORVASTATIN [Suspect]
     Active Substance: ATORVASTATIN
     Indication: Condition aggravated
     Dosage: 40 MILLIGRAM, QD
     Route: 048
     Dates: start: 20220311
  26. ASPIRIN [Suspect]
     Active Substance: ASPIRIN
     Indication: Product used for unknown indication
     Dosage: 100 MILLIGRAM, QD/ ORAL?100 MG?PDF-10219000: PDF-10219000
  27. ZOPICLONE [Concomitant]
     Active Substance: ZOPICLONE
     Indication: Insomnia
     Dosage: 3.75 MILLIGRAM, QD
     Route: 048
     Dates: start: 20220607

REACTIONS (4)
  - Chronic obstructive pulmonary disease [Recovered/Resolved]
  - Condition aggravated [Recovered/Resolved]
  - Product use in unapproved indication [None]
  - Radiation pneumonitis [Recovered/Resolved]

NARRATIVE: CASE EVENT DATE: 20220629
